FAERS Safety Report 26127008 (Version 1)
Quarter: 2025Q4

REPORT INFORMATION
  Report Type: Spontaneous
  Country: US (occurrence: US)
  Receive Date: 20251205
  Receipt Date: 20251205
  Transmission Date: 20260117
  Serious: No
  Sender: PRIMUS PHARMACEUTICALS
  Company Number: US-PRIMUS-2025-US-020571

PATIENT
  Age: 75 Year
  Sex: Female

DRUGS (5)
  1. IMPOYZ [Suspect]
     Active Substance: CLOBETASOL PROPIONATE
     Indication: Psoriasis
     Route: 061
     Dates: start: 20250403, end: 20250407
  2. METOPROLOL SUCCINATE [Concomitant]
     Active Substance: METOPROLOL SUCCINATE
  3. INDOMETHACIN [Concomitant]
     Active Substance: INDOMETHACIN
  4. ESOMEPRAZOLE SODIUM [Concomitant]
     Active Substance: ESOMEPRAZOLE SODIUM
  5. AMLODIPINE [Concomitant]
     Active Substance: AMLODIPINE BESYLATE

REACTIONS (2)
  - Pruritus [Unknown]
  - Vasodilatation [Unknown]
